FAERS Safety Report 9498928 (Version 2)
Quarter: 2014Q1

REPORT INFORMATION
  Report Type: Spontaneous
  Country: BE (occurrence: BE)
  Receive Date: 20130904
  Receipt Date: 20140207
  Transmission Date: 20141002
  Serious: Yes (Other)
  Sender: FDA-Public Use
  Company Number: BE-ELI_LILLY_AND_COMPANY-BE201308007901

PATIENT
  Age: 62 Year
  Sex: Male
  Weight: 92 kg

DRUGS (8)
  1. OMEPRAZOLE [Concomitant]
     Dosage: UNK, UNKNOWN
  2. PRETERAX                           /01421201/ [Concomitant]
     Indication: HYPERTENSION
     Dosage: 10 MG, QD
     Route: 048
     Dates: start: 20090213
  3. CYMBALTA [Suspect]
     Indication: DEPRESSION
     Dosage: 1 DF, QD
     Route: 048
     Dates: start: 20100203, end: 20101108
  4. AMLOR [Concomitant]
     Dosage: UNK, UNKNOWN
  5. ZYLORIC [Concomitant]
     Dosage: UNK, UNKNOWN
  6. MICARDIS [Concomitant]
     Indication: HYPERTENSION
     Dosage: UNK, UNKNOWN
  7. KREDEX [Concomitant]
     Dosage: UNK, UNKNOWN
  8. ZOCOR [Concomitant]
     Dosage: UNK, UNKNOWN

REACTIONS (1)
  - Hemiparesis [Recovered/Resolved]
